FAERS Safety Report 9335138 (Version 1)
Quarter: 2013Q2

REPORT INFORMATION
  Report Type: Spontaneous
  Country: CH (occurrence: CH)
  Receive Date: 20130606
  Receipt Date: 20130606
  Transmission Date: 20140414
  Serious: Yes (Other)
  Sender: FDA-Public Use
  Company Number: CH-PFIZER INC-2013170571

PATIENT
  Age: 48 Year
  Sex: Male
  Weight: 100 kg

DRUGS (3)
  1. LYRICA [Suspect]
     Indication: NECK PAIN
     Dosage: 75 MG, 2X/DAY
     Route: 048
     Dates: start: 201304
  2. GADOVIST [Suspect]
     Indication: IMAGING PROCEDURE
     Dosage: 8 ML, SINGLE
     Route: 040
     Dates: start: 20130517, end: 20130517
  3. SINTROM [Concomitant]
     Indication: EMBOLISM VENOUS
     Dosage: 1 DF, AS NEEDED
     Route: 048
     Dates: start: 201211

REACTIONS (3)
  - Gouty arthritis [Recovering/Resolving]
  - Monarthritis [Recovering/Resolving]
  - Blood uric acid increased [Unknown]
